FAERS Safety Report 25872899 (Version 1)
Quarter: 2025Q4

REPORT INFORMATION
  Report Type: Spontaneous
  Country: CN (occurrence: CN)
  Receive Date: 20251002
  Receipt Date: 20251002
  Transmission Date: 20260118
  Serious: Yes (Hospitalization)
  Sender: ROCHE
  Company Number: CN-BoehringerIngelheim-2025-BI-098076

PATIENT
  Age: 59 Year
  Sex: Male
  Weight: 60.0 kg

DRUGS (2)
  1. ALTEPLASE [Suspect]
     Active Substance: ALTEPLASE
     Indication: Cerebral infarction
     Route: 042
     Dates: start: 20250916, end: 20250916
  2. SODIUM CHLORIDE [Concomitant]
     Active Substance: SODIUM CHLORIDE
     Indication: Drug therapy
     Route: 042
     Dates: start: 20250916, end: 20250916

REACTIONS (2)
  - Fibrin degradation products increased [Recovering/Resolving]
  - Blood fibrinogen decreased [Unknown]

NARRATIVE: CASE EVENT DATE: 20250917
